FAERS Safety Report 7364846-2 (Version None)
Quarter: 2011Q1

REPORT INFORMATION
  Report Type: 
  Country: None (occurrence: None)
  Receive Date: 20110321
  Receipt Date: 20110309
  Transmission Date: 20110831
  Serious: Yes (Other)
  Sender: FDA-Public Use
  Company Number: PHHY2011JP19852

PATIENT
  Age: 56 Year
  Sex: Female

DRUGS (3)
  1. CYCLOSPORINE [Suspect]
     Indication: BONE MARROW TRANSPLANT
     Dosage: UNK
  2. BUSULFAN [Concomitant]
     Indication: BONE MARROW TRANSPLANT
  3. METHOTREXATE [Concomitant]
     Indication: BONE MARROW TRANSPLANT

REACTIONS (1)
  - HISTIOCYTOSIS HAEMATOPHAGIC [None]
